FAERS Safety Report 17991162 (Version 1)
Quarter: 2020Q3

REPORT INFORMATION
  Report Type: Spontaneous
  Country: GB (occurrence: GB)
  Receive Date: 20200707
  Receipt Date: 20200707
  Transmission Date: 20201103
  Serious: Yes (Other)
  Sender: FDA-Public Use
  Company Number: GB-TEVA-2020-GB-1796986

PATIENT
  Age: 59 Year
  Sex: Male

DRUGS (8)
  1. CYCLOSPORINE A [Suspect]
     Active Substance: CYCLOSPORINE
     Indication: PROPHYLAXIS AGAINST GRAFT VERSUS HOST DISEASE
     Dosage: 3 MG/KG DAILY; STARTING ON DAY 1
     Route: 042
  2. FLUDARABINE [Suspect]
     Active Substance: FLUDARABINE PHOSPHATE
     Indication: IMMUNOSUPPRESSANT DRUG THERAPY
     Route: 065
  3. ALEMTUZUMAB [Suspect]
     Active Substance: ALEMTUZUMAB
     Indication: IMMUNOSUPPRESSANT DRUG THERAPY
     Route: 065
  4. CIDOFOVIR. [Suspect]
     Active Substance: CIDOFOVIR
     Indication: HERPES SIMPLEX
     Dosage: ORAL MOUTHWASH
     Route: 061
  5. ACICLOVIR [Suspect]
     Active Substance: ACYCLOVIR
     Indication: ANTIVIRAL PROPHYLAXIS
     Dosage: 800 MILLIGRAM DAILY;
     Route: 048
  6. BUSULPHAN [Suspect]
     Active Substance: BUSULFAN
     Indication: IMMUNOSUPPRESSANT DRUG THERAPY
     Route: 065
  7. CIDOFOVIR. [Suspect]
     Active Substance: CIDOFOVIR
     Indication: HERPES SIMPLEX
     Route: 061
  8. FOSCARNET [Suspect]
     Active Substance: FOSCARNET
     Indication: HERPES SIMPLEX
     Route: 065

REACTIONS (5)
  - Renal impairment [Unknown]
  - Off label use [Unknown]
  - Herpes simplex [Not Recovered/Not Resolved]
  - Pathogen resistance [Not Recovered/Not Resolved]
  - Electrolyte imbalance [Unknown]
